FAERS Safety Report 7487091-9 (Version None)
Quarter: 2011Q2

REPORT INFORMATION
  Report Type: 
  Country: None (occurrence: None)
  Receive Date: 20110509
  Receipt Date: 20110428
  Transmission Date: 20111010
  Serious: Yes (Other)
  Sender: FDA-Public Use
  Company Number: 2010SP057393

PATIENT
  Age: 42 Year
  Sex: Female

DRUGS (8)
  1. MIRTAZAPINE [Suspect]
     Indication: DEPRESSION
     Dosage: 15 MG;QD;PO ; 30 MG;QD;PO
     Route: 048
     Dates: start: 20100420, end: 20100607
  2. MIRTAZAPINE [Suspect]
     Indication: DEPRESSION
     Dosage: 15 MG;QD;PO ; 30 MG;QD;PO
     Route: 048
     Dates: start: 20100608
  3. SENNA EXTRACT [Concomitant]
  4. PITAVASTATIN CALCIUM [Concomitant]
  5. MAGNESIUM OXIDE [Concomitant]
  6. HYDROCHLORIDE HYDRATE [Concomitant]
  7. ETIZOLAM [Concomitant]
  8. PAROXETINE HCL [Concomitant]

REACTIONS (8)
  - OCULAR HYPERAEMIA [None]
  - DEPRESSED MOOD [None]
  - MALAISE [None]
  - EYE PRURITUS [None]
  - URTICARIA [None]
  - FACE OEDEMA [None]
  - EYELID OEDEMA [None]
  - ASTHMA [None]
